FAERS Safety Report 10206937 (Version 2)
Quarter: 2014Q3

REPORT INFORMATION
  Report Type: Spontaneous
  Country: IT (occurrence: IT)
  Receive Date: 20140530
  Receipt Date: 20140731
  Transmission Date: 20150326
  Serious: Yes (Other)
  Sender: FDA-Public Use
  Company Number: IT-B.I. PHARMACEUTICALS,INC./RIDGEFIELD-2014-BI-23180IT

PATIENT
  Age: 77 Year
  Sex: Female

DRUGS (6)
  1. PANTOPRAZOLE [Concomitant]
     Active Substance: PANTOPRAZOLE SODIUM
     Route: 065
  2. MIRAPEXN [Concomitant]
     Route: 065
  3. LANOXIN [Concomitant]
     Active Substance: DIGOXIN
     Route: 065
  4. PRADAXA [Suspect]
     Active Substance: DABIGATRAN ETEXILATE MESYLATE
     Indication: ATRIAL FIBRILLATION
     Route: 048
     Dates: start: 20140305, end: 20140514
  5. ALMARYTM [Concomitant]
     Active Substance: FLECAINIDE ACETATE
     Route: 065
  6. JUMEX [Concomitant]
     Active Substance: SELEGILINE HYDROCHLORIDE
     Route: 065

REACTIONS (1)
  - Hepatitis [Unknown]

NARRATIVE: CASE EVENT DATE: 20140514
